FAERS Safety Report 15778943 (Version 1)
Quarter: 2019Q1

REPORT INFORMATION
  Report Type: Spontaneous
  Country: CN (occurrence: CN)
  Receive Date: 20190101
  Receipt Date: 20190101
  Transmission Date: 20190417
  Serious: Yes (Other)
  Sender: FDA-Public Use
  Company Number: CN-ROCHE-2237940

PATIENT
  Age: 55 Year
  Sex: Male

DRUGS (8)
  1. CALCIUM FOLINATE [Concomitant]
     Active Substance: LEUCOVORIN CALCIUM
     Route: 065
  2. BEVACIZUMAB. [Suspect]
     Active Substance: BEVACIZUMAB
     Indication: METASTASES TO LIVER
     Route: 065
  3. CALCIUM FOLINATE [Concomitant]
     Active Substance: LEUCOVORIN CALCIUM
     Route: 065
     Dates: start: 20161113
  4. IRINOTECAN [Concomitant]
     Active Substance: IRINOTECAN
     Route: 065
     Dates: start: 20161113
  5. FLUOROURACIL. [Concomitant]
     Active Substance: FLUOROURACIL
     Route: 065
  6. BEVACIZUMAB. [Suspect]
     Active Substance: BEVACIZUMAB
     Indication: COLON CANCER
     Route: 065
     Dates: start: 20161113
  7. IRINOTECAN [Concomitant]
     Active Substance: IRINOTECAN
     Route: 065
  8. FLUOROURACIL. [Concomitant]
     Active Substance: FLUOROURACIL
     Route: 065
     Dates: start: 20161113

REACTIONS (5)
  - Bone marrow failure [Unknown]
  - Decreased appetite [Unknown]
  - Weight decreased [Unknown]
  - Fatigue [Unknown]
  - Diarrhoea [Unknown]
